FAERS Safety Report 7549664-4 (Version None)
Quarter: 2011Q2

REPORT INFORMATION
  Report Type: 
  Country: None (occurrence: None)
  Receive Date: 20110608
  Receipt Date: 20110530
  Transmission Date: 20111010
  Serious: Yes (Hospitalization)
  Sender: FDA-Public Use
  Company Number: 2011SP024916

PATIENT
  Age: 62 Year
  Sex: Female

DRUGS (4)
  1. LANSOR [Concomitant]
  2. REBETOL [Suspect]
     Indication: HEPATITIS C
     Dates: start: 20100322, end: 20100405
  3. ATACAND HCT [Concomitant]
  4. PEG-INTRON [Suspect]
     Indication: HEPATITIS C
     Dosage: 100 MCG, QW, SC
     Route: 058
     Dates: start: 20100322, end: 20100405

REACTIONS (6)
  - PYREXIA [None]
  - INSOMNIA [None]
  - DECREASED APPETITE [None]
  - FATIGUE [None]
  - DEPRESSION [None]
  - HEPATIC CIRRHOSIS [None]
